FAERS Safety Report 7691358-9 (Version None)
Quarter: 2011Q3

REPORT INFORMATION
  Report Type: 
  Country: None (occurrence: None)
  Receive Date: 20110817
  Receipt Date: 20110817
  Transmission Date: 20111222
  Serious: Yes (Life-Threatening)
  Sender: FDA-Public Use
  Company Number: None

PATIENT
  Sex: Female
  Weight: 56.6996 kg

DRUGS (1)
  1. URSODIOL [Suspect]
     Indication: BLOOD CHOLESTEROL
     Dates: start: 20110501

REACTIONS (2)
  - URTICARIA [None]
  - REACTION TO DRUG EXCIPIENTS [None]
